FAERS Safety Report 5140226-5 (Version None)
Quarter: 2006Q4

REPORT INFORMATION
  Report Type: 
  Country: None (occurrence: None)
  Receive Date: 20061024
  Receipt Date: 20061010
  Transmission Date: 20070319
  Serious: Yes (Other)
  Sender: FDA-Public Use
  Company Number: CIP06001807

PATIENT
  Age: 54 Year
  Sex: Female

DRUGS (5)
  1. ACTONEL [Suspect]
     Dosage: 35 MG ONCE WEEKLY, ORAL
     Route: 048
     Dates: start: 20000101, end: 20060801
  2. AMBIEN [Concomitant]
  3. CLONAZEPAM [Concomitant]
  4. CALCIUM (CALCIUM) [Concomitant]
  5. MULTI-VIT (VITAMINS NOS) [Concomitant]

REACTIONS (9)
  - DYSGEUSIA [None]
  - GASTROOESOPHAGEAL REFLUX DISEASE [None]
  - GINGIVAL INFECTION [None]
  - HYPOAESTHESIA ORAL [None]
  - IMPAIRED HEALING [None]
  - MASTICATION DISORDER [None]
  - ORAL DISCOMFORT [None]
  - ORAL INTAKE REDUCED [None]
  - OSTEONECROSIS [None]
